FAERS Safety Report 8230155-2 (Version None)
Quarter: 2012Q1

REPORT INFORMATION
  Report Type: 
  Country: None (occurrence: None)
  Receive Date: 20120323
  Receipt Date: 20120321
  Transmission Date: 20120608
  Serious: Yes (Other)
  Sender: FDA-Public Use
  Company Number: US-PFIZER INC-2012016085

PATIENT
  Sex: Male
  Weight: 104 kg

DRUGS (4)
  1. CHANTIX [Suspect]
     Dosage: 1 MG, 2X/DAY
     Route: 048
     Dates: end: 20120321
  2. CHANTIX [Suspect]
     Dosage: UNK
     Dates: start: 20120101
  3. CHANTIX [Suspect]
     Dosage: 0.5 MG, 1X/DAY
     Route: 048
     Dates: start: 20120201
  4. CHANTIX [Suspect]
     Indication: SMOKING CESSATION THERAPY
     Dosage: 0.5 MG, DAILY
     Dates: start: 20120101, end: 20120101

REACTIONS (11)
  - SMOKE SENSITIVITY [None]
  - DYSPNOEA [None]
  - DYSGEUSIA [None]
  - PANIC ATTACK [None]
  - SOMNOLENCE [None]
  - FATIGUE [None]
  - WEIGHT INCREASED [None]
  - ANXIETY [None]
  - LUNG DISORDER [None]
  - LAZINESS [None]
  - BLISTER [None]
